FAERS Safety Report 19990431 (Version 1)
Quarter: 2021Q4

REPORT INFORMATION
  Report Type: Spontaneous
  Country: CA (occurrence: CA)
  Receive Date: 20211025
  Receipt Date: 20211025
  Transmission Date: 20220303
  Serious: Yes (Other)
  Sender: FDA-Public Use
  Company Number: CA-PFIZER INC-202101392032

PATIENT
  Age: 25 Year
  Sex: Male

DRUGS (5)
  1. METHOTREXATE [Suspect]
     Active Substance: METHOTREXATE
     Indication: Product used for unknown indication
     Route: 048
  2. CALCIUM [Concomitant]
     Active Substance: CALCIUM
     Route: 065
  3. FOLIC ACID [Concomitant]
     Active Substance: FOLIC ACID
     Dosage: UNK
     Route: 065
  4. PENTASA [Concomitant]
     Active Substance: MESALAMINE
     Route: 065
  5. STELARA [Concomitant]
     Active Substance: USTEKINUMAB
     Route: 065

REACTIONS (1)
  - Colitis ulcerative [Not Recovered/Not Resolved]
